FAERS Safety Report 8401107-4 (Version None)
Quarter: 2012Q2

REPORT INFORMATION
  Report Type: 
  Country: None (occurrence: None)
  Receive Date: 20120601
  Receipt Date: 20120529
  Transmission Date: 20120825
  Serious: No
  Sender: FDA-Public Use
  Company Number: US-PFIZER INC-2012129230

PATIENT
  Sex: Female
  Weight: 56.236 kg

DRUGS (3)
  1. LYRICA [Suspect]
     Indication: PERIPHERAL NERVE INJURY
     Dosage: 75 MG, 2X/DAY
     Route: 048
     Dates: start: 20110601, end: 20120518
  2. LYRICA [Suspect]
     Indication: FIBROMYALGIA
  3. VALIUM [Concomitant]
     Dosage: UNK

REACTIONS (1)
  - FIBROMYALGIA [None]
